FAERS Safety Report 5136787-2 (Version None)
Quarter: 2006Q4

REPORT INFORMATION
  Report Type: 
  Country: None (occurrence: None)
  Receive Date: 20061016
  Receipt Date: 20061002
  Transmission Date: 20070319
  Serious: Yes (Other)
  Sender: FDA-Public Use
  Company Number: 2006BH013751

PATIENT
  Age: 44 Year
  Sex: Male
  Weight: 106.82 kg

DRUGS (7)
  1. ARALAST [Suspect]
     Indication: ALPHA-1 ANTI-TRYPSIN DEFICIENCY
     Dosage: 8500 MG; EVERY WEEK; IV, SEE IMAGE
     Route: 042
     Dates: start: 20060201, end: 20060901
  2. ARALAST [Suspect]
     Indication: ALPHA-1 ANTI-TRYPSIN DEFICIENCY
     Dosage: 8500 MG; EVERY WEEK; IV, SEE IMAGE
     Route: 042
     Dates: start: 20060901
  3. DUONEB [Concomitant]
  4. SINGULAIR [Concomitant]
  5. ZYRTEC [Concomitant]
  6. ADVAIR DISKUS 100/50 [Concomitant]
  7. IPRATOPIUM BROMIDE [Concomitant]

REACTIONS (3)
  - FATIGUE [None]
  - SWELLING FACE [None]
  - VISION BLURRED [None]
